FAERS Safety Report 23554879 (Version 1)
Quarter: 2024Q1

REPORT INFORMATION
  Report Type: Report from Study
  Country: IN (occurrence: IN)
  Receive Date: 20240222
  Receipt Date: 20240222
  Transmission Date: 20240410
  Serious: Yes (Hospitalization)
  Sender: FDA-Public Use
  Company Number: IN-002147023-NVSC2023IN147837

PATIENT
  Age: 45 Year
  Sex: Female

DRUGS (3)
  1. TASIGNA [Suspect]
     Active Substance: NILOTINIB
     Indication: Chronic myeloid leukaemia
     Dosage: 400 MG, BID
     Route: 048
     Dates: start: 20190201, end: 20230531
  2. TASIGNA [Suspect]
     Active Substance: NILOTINIB
     Dosage: 200 MG (TWO IN MORNING AND ONE IN EVENING)
     Route: 048
     Dates: start: 20190201
  3. TASIGNA [Suspect]
     Active Substance: NILOTINIB
     Dosage: UNK, (400MG-0-200MG)
     Route: 048
     Dates: start: 20230601

REACTIONS (3)
  - Pleural effusion [Unknown]
  - Urinary retention [Unknown]
  - Anaemia [Not Recovered/Not Resolved]

NARRATIVE: CASE EVENT DATE: 20230601
